FAERS Safety Report 25455183 (Version 1)
Quarter: 2025Q2

REPORT INFORMATION
  Report Type: Report from Study
  Country: MX (occurrence: MX)
  Receive Date: 20250619
  Receipt Date: 20250619
  Transmission Date: 20250716
  Serious: Yes (Death)
  Sender: NOVARTIS
  Company Number: MX-002147023-NVSC2025MX097901

PATIENT
  Sex: Female
  Weight: 62 kg

DRUGS (1)
  1. KISQALI [Suspect]
     Active Substance: RIBOCICLIB SUCCINATE
     Indication: Breast cancer
     Dosage: 3 DOSAGE FORM, QD (3 OF 200MG)
     Route: 048
     Dates: start: 20240606, end: 20250611

REACTIONS (4)
  - Gastrointestinal disorder [Fatal]
  - Condition aggravated [Fatal]
  - Breast cancer [Fatal]
  - Malignant neoplasm progression [Fatal]
